FAERS Safety Report 7041977-8 (Version None)
Quarter: 2010Q4

REPORT INFORMATION
  Report Type: 
  Country: None (occurrence: None)
  Receive Date: 20101013
  Receipt Date: 20100427
  Transmission Date: 20110411
  Serious: No
  Sender: FDA-Public Use
  Company Number: US-ASTRAZENECA-2010SE18786

PATIENT
  Age: 49 Year
  Sex: Female
  Weight: 68 kg

DRUGS (3)
  1. SYMBICORT [Suspect]
     Indication: ASTHMA
     Dosage: 160/4.5 ONCE
     Route: 055
  2. INDERAL [Concomitant]
  3. KLONOPIN [Concomitant]

REACTIONS (5)
  - ASTHMA [None]
  - DRUG DOSE OMISSION [None]
  - FEELING ABNORMAL [None]
  - NASAL CONGESTION [None]
  - OROPHARYNGEAL PAIN [None]
